FAERS Safety Report 10089354 (Version 1)
Quarter: 2014Q2

REPORT INFORMATION
  Report Type: Spontaneous
  Country: US (occurrence: None)
  Receive Date: 20140418
  Receipt Date: 20140418
  Transmission Date: 20141212
  Serious: Yes (Death)
  Sender: FDA-Public Use
  Company Number: None

PATIENT
  Age: 56 Year
  Sex: Male
  Weight: 65 kg

DRUGS (2)
  1. ERLOTINIB [Suspect]
     Route: 048
     Dates: start: 20140306, end: 20140331
  2. INC280 [Suspect]
     Route: 048
     Dates: start: 20140306, end: 20140331

REACTIONS (1)
  - Disease progression [None]
